FAERS Safety Report 4855796-1 (Version None)
Quarter: 2005Q4

REPORT INFORMATION
  Report Type: 
  Country: None (occurrence: None)
  Receive Date: 20051216
  Receipt Date: 20050330
  Transmission Date: 20060501
  Serious: Yes (Other)
  Sender: FDA-Public Use
  Company Number: ES-MERCK-0504ESP00003

PATIENT
  Age: 0 Day
  Sex: Male
  Weight: 2 kg

DRUGS (2)
  1. FOSAMAX [Suspect]
     Indication: OSTEOPOROSIS
     Dates: start: 20041201, end: 20050322
  2. FOSAMAX [Suspect]
     Indication: FOOT FRACTURE
     Dates: start: 20041201, end: 20050322

REACTIONS (2)
  - PREMATURE BABY [None]
  - SMALL FOR DATES BABY [None]
